FAERS Safety Report 21690156 (Version 2)
Quarter: 2023Q1

REPORT INFORMATION
  Report Type: Spontaneous
  Country: JP (occurrence: JP)
  Receive Date: 20221206
  Receipt Date: 20230308
  Transmission Date: 20230418
  Serious: Yes (Other)
  Sender: FDA-Public Use
  Company Number: JP-MOCHP-A20224549

PATIENT
  Sex: Female

DRUGS (1)
  1. ESCITALOPRAM OXALATE [Suspect]
     Active Substance: ESCITALOPRAM OXALATE
     Indication: Product used for unknown indication
     Dosage: UNK
     Route: 048

REACTIONS (1)
  - Angle closure glaucoma [Unknown]
